FAERS Safety Report 8847981 (Version 1)
Quarter: 2012Q4

REPORT INFORMATION
  Report Type: 
  Country: US (occurrence: US)
  Receive Date: 20121018
  Receipt Date: 20121018
  Transmission Date: 20130627
  Serious: Yes (Other)
  Sender: FDA-Public Use
  Company Number: US-ROCHE-1143326

PATIENT
  Sex: Female

DRUGS (13)
  1. NUTROPIN AQ [Suspect]
     Indication: HYPOPITUITARISM
     Route: 058
  2. MAXZIDE [Concomitant]
  3. LUVOX [Concomitant]
  4. DEXAMETHASONE [Concomitant]
     Route: 048
  5. PEPCID AC [Concomitant]
  6. VITAMIN E [Concomitant]
  7. INDERAL LA [Concomitant]
     Route: 048
  8. LIPITOR [Concomitant]
     Route: 048
  9. SYNTHROID [Concomitant]
     Route: 048
  10. NASALCROM [Concomitant]
  11. CLARITIN [Concomitant]
  12. GARLIC [Concomitant]
     Route: 048
  13. TESTODERM PATCH [Concomitant]
     Route: 061

REACTIONS (7)
  - Upper-airway cough syndrome [Unknown]
  - Bronchitis [Unknown]
  - Hypersensitivity [Unknown]
  - Fluid retention [Unknown]
  - Contusion [Unknown]
  - Vision blurred [Unknown]
  - Abdominal mass [Unknown]
